FAERS Safety Report 4849408-0 (Version None)
Quarter: 2005Q4

REPORT INFORMATION
  Report Type: 
  Country: None (occurrence: None)
  Receive Date: 20051207
  Receipt Date: 20051201
  Transmission Date: 20060501
  Serious: Yes (Hospitalization)
  Sender: FDA-Public Use
  Company Number: 2005-12-0108

PATIENT
  Age: 29 Year
  Sex: Female

DRUGS (2)
  1. RIBAVIRIN [Suspect]
     Indication: HEPATITIS C
     Dosage: ORAL
     Route: 048
     Dates: start: 20050901
  2. PEGASYS [Suspect]
     Indication: HEPATITIS C
     Dates: start: 20050901

REACTIONS (2)
  - PNEUMONIA [None]
  - SICKLE CELL ANAEMIA WITH CRISIS [None]
